FAERS Safety Report 9362934 (Version 1)
Quarter: 2013Q2

REPORT INFORMATION
  Report Type: Spontaneous
  Country: US (occurrence: None)
  Receive Date: 20130621
  Receipt Date: 20130621
  Transmission Date: 20140414
  Serious: No
  Sender: FDA-Public Use
  Company Number: None

PATIENT
  Age: 68 Year
  Sex: Female

DRUGS (1)
  1. ENBREL [Suspect]
     Indication: RHEUMATOID ARTHRITIS
     Dosage: SQ
     Dates: start: 20130219

REACTIONS (4)
  - Nausea [None]
  - Asthenia [None]
  - Tremor [None]
  - Chronic obstructive pulmonary disease [None]
